FAERS Safety Report 7931849-6 (Version None)
Quarter: 2011Q4

REPORT INFORMATION
  Report Type: 
  Country: None (occurrence: None)
  Receive Date: 20111121
  Receipt Date: 20110725
  Transmission Date: 20120403
  Serious: Yes (Hospitalization)
  Sender: FDA-Public Use
  Company Number: CN-BAYER-2011-064117

PATIENT
  Age: 56 Year
  Sex: Female

DRUGS (2)
  1. METRONIDAZOLE [Suspect]
     Dosage: 0.5 G, QD
     Route: 041
  2. AVELOX [Suspect]
     Dosage: 400 MG, QD
     Route: 041

REACTIONS (3)
  - GENERALISED ERYTHEMA [None]
  - PRURITUS GENERALISED [None]
  - DERMATITIS EXFOLIATIVE [None]
